FAERS Safety Report 7822931-2 (Version None)
Quarter: 2011Q4

REPORT INFORMATION
  Report Type: 
  Country: None (occurrence: None)
  Receive Date: 20111018
  Receipt Date: 20101214
  Transmission Date: 20120403
  Serious: No
  Sender: FDA-Public Use
  Company Number: US-ASTRAZENECA-2010SE59099

PATIENT
  Age: 26391 Day
  Sex: Female
  Weight: 56.7 kg

DRUGS (2)
  1. SYMBICORT [Suspect]
     Dosage: 160/4.5 TWO PUFFS BID
     Route: 055
  2. ANTIDEPRESSANT [Concomitant]

REACTIONS (2)
  - HYPERVENTILATION [None]
  - DRUG DOSE OMISSION [None]
